FAERS Safety Report 13576207 (Version 1)
Quarter: 2017Q2

REPORT INFORMATION
  Report Type: Spontaneous
  Country: US (occurrence: US)
  Receive Date: 20170524
  Receipt Date: 20170524
  Transmission Date: 20170830
  Serious: No
  Sender: FDA-Public Use
  Company Number: US-ACTELION-A-NJ2017-154307

PATIENT
  Age: 10 Month
  Sex: Female

DRUGS (1)
  1. TRACLEER [Suspect]
     Active Substance: BOSENTAN
     Indication: PRODUCT USED FOR UNKNOWN INDICATION
     Dosage: 1./2 TABLET IN 10ML WATER/1.4ML BID
     Route: 048

REACTIONS (2)
  - No adverse event [Unknown]
  - Drug administered to patient of inappropriate age [Unknown]
